FAERS Safety Report 5094285-9 (Version None)
Quarter: 2006Q3

REPORT INFORMATION
  Report Type: 
  Country: None (occurrence: None)
  Receive Date: 20060831
  Receipt Date: 20060829
  Transmission Date: 20061208
  Serious: Yes (Other)
  Sender: FDA-Public Use
  Company Number: US-GLAXOSMITHKLINE-A0618460A

PATIENT
  Age: 66 Year
  Sex: Male

DRUGS (6)
  1. SOMINEX [Suspect]
     Indication: SLEEP DISORDER
     Route: 048
     Dates: start: 20060101, end: 20060101
  2. HYZAAR [Concomitant]
  3. DITROPAN [Concomitant]
  4. DOCUSATE [Concomitant]
  5. LIPITOR [Concomitant]
  6. NORVASC [Concomitant]

REACTIONS (4)
  - DRUG INEFFECTIVE [None]
  - FATIGUE [None]
  - OVERDOSE [None]
  - VISUAL ACUITY REDUCED [None]
